FAERS Safety Report 7208292-0 (Version None)
Quarter: 2010Q4

REPORT INFORMATION
  Report Type: 
  Country: None (occurrence: None)
  Receive Date: 20101126
  Receipt Date: 20100811
  Transmission Date: 20110411
  Serious: Yes (Other)
  Sender: FDA-Public Use
  Company Number: 313117

PATIENT
  Age: 63 Year
  Sex: Female

DRUGS (10)
  1. VICTOZA [Suspect]
     Indication: TYPE 2 DIABETES MELLITUS
     Dosage: 0.6 MG, SINGLE, SUBCUTANEOUS
     Route: 058
     Dates: start: 20100715, end: 20100715
  2. METFORMIN (METFORMIN) [Concomitant]
  3. CRESTOR [Concomitant]
  4. ATACAND [Concomitant]
  5. NORVASC [Concomitant]
  6. ATENOLOL [Concomitant]
  7. LEVOTHYROXINE SODIUM [Concomitant]
  8. LOVAGA (OMEGA-3 MARINE TRIGLYCERIDES) [Concomitant]
  9. TRAMADOL HCL [Concomitant]
  10. TRAVATAN [Concomitant]

REACTIONS (2)
  - PANCREATITIS ACUTE [None]
  - STOMATITIS [None]
